FAERS Safety Report 7285312-9 (Version None)
Quarter: 2011Q1

REPORT INFORMATION
  Report Type: 
  Country: None (occurrence: None)
  Receive Date: 20110210
  Receipt Date: 20110127
  Transmission Date: 20110831
  Serious: Yes (Death, Hospitalization)
  Sender: FDA-Public Use
  Company Number: JP-ROCHE-749121

PATIENT
  Age: 47 Year
  Sex: Female
  Weight: 49 kg

DRUGS (5)
  1. XELODA [Suspect]
     Indication: BREAST CANCER RECURRENT
     Dosage: NOTE: IT IS ONE ADMINISTERING WEEKLY HOLIDAY MEDICINE FOR TWO WEEKS.
     Route: 048
     Dates: start: 20100531, end: 20100916
  2. ENDOXAN [Concomitant]
     Dosage: NOTE: IT IS ONE ADMINISTERING WEEKLY HOLIDAY MEDICINE FOR TWO WEEKS.
     Dates: start: 20100531, end: 20100916
  3. ZOMETA [Concomitant]
     Route: 041
     Dates: start: 20080101, end: 20100701
  4. AMLODIPINE [Concomitant]
     Route: 048
  5. CYTOTEC [Concomitant]
     Route: 048

REACTIONS (6)
  - ANAEMIA [None]
  - INTERSTITIAL LUNG DISEASE [None]
  - DYSPNOEA EXERTIONAL [None]
  - PLATELET COUNT DECREASED [None]
  - OXYGEN SATURATION DECREASED [None]
  - HEPATIC FAILURE [None]
